FAERS Safety Report 12199104 (Version 1)
Quarter: 2016Q1

REPORT INFORMATION
  Report Type: Spontaneous
  Country: AT (occurrence: AT)
  Receive Date: 20160322
  Receipt Date: 20160322
  Transmission Date: 20160526
  Serious: Yes (Other)
  Sender: FDA-Public Use
  Company Number: AT-VELOXIS PHARMACEUTICALS-1049408

PATIENT
  Age: 73 Year
  Sex: Male
  Weight: 95 kg

DRUGS (6)
  1. ENVARSUS XR [Suspect]
     Active Substance: TACROLIMUS
     Indication: PROPHYLAXIS AGAINST TRANSPLANT REJECTION
     Route: 048
  2. ENVARSUS XR [Suspect]
     Active Substance: TACROLIMUS
  3. ENVARSUS XR [Suspect]
     Active Substance: TACROLIMUS
  4. ENVARSUS XR [Suspect]
     Active Substance: TACROLIMUS
  5. ENVARSUS XR [Suspect]
     Active Substance: TACROLIMUS
     Route: 048
  6. MYCOPHENOLATE MOFETIL. [Concomitant]
     Active Substance: MYCOPHENOLATE MOFETIL

REACTIONS (1)
  - Pulmonary embolism [Unknown]
